FAERS Safety Report 7231891-7 (Version None)
Quarter: 2011Q1

REPORT INFORMATION
  Report Type: 
  Country: None (occurrence: None)
  Receive Date: 20110118
  Receipt Date: 20090525
  Transmission Date: 20110831
  Serious: Yes (Hospitalization)
  Sender: FDA-Public Use
  Company Number: PHHY2008FR10840

PATIENT
  Sex: Male
  Weight: 93 kg

DRUGS (37)
  1. BACTRIM [Suspect]
     Dosage: UNK
     Route: 048
     Dates: start: 20080515, end: 20080518
  2. BACTRIM [Suspect]
     Dosage: UNK
     Dates: start: 20080818
  3. DEXAMETHASONE [Concomitant]
     Dosage: UNK
     Route: 042
     Dates: start: 20080326, end: 20080326
  4. SPASFON [Concomitant]
     Dosage: UNK
     Dates: start: 20080515
  5. GLEEVEC [Suspect]
     Dosage: UNK
     Dates: start: 20090401
  6. VINCRISTINE [Suspect]
     Dosage: UNK
     Route: 042
     Dates: start: 20080225, end: 20080225
  7. ENDOXAN [Suspect]
     Dosage: 5 X 344 MG
     Route: 042
     Dates: start: 20080510, end: 20080512
  8. CYTARABINE [Suspect]
     Dosage: UNK
     Route: 042
     Dates: start: 20080418, end: 20080418
  9. PURINETHOL [Concomitant]
     Dosage: UNK
     Dates: start: 20080818
  10. METHOTREXATE [Suspect]
     Dosage: 8600 MG/DAY
     Dates: start: 20080509, end: 20080509
  11. ENDOXAN [Suspect]
     Dosage: UNK
     Route: 042
     Dates: start: 20080225, end: 20080225
  12. DEXAMETHASONE [Concomitant]
     Dosage: UNK
     Route: 042
     Dates: start: 20080225, end: 20080225
  13. ACTISKENAN [Concomitant]
     Dosage: UNK
     Dates: start: 20080516
  14. ORACILLINE [Concomitant]
  15. RADIOTHERAPY [Concomitant]
  16. METHOTREXATE [Suspect]
     Dosage: UNK
     Route: 042
     Dates: start: 20080225, end: 20080225
  17. METHOTREXATE [Suspect]
     Dosage: (LOW DOSE)
     Dates: start: 20080818
  18. MESNA [Concomitant]
     Dosage: 120 MG, QID
     Dates: start: 20080510, end: 20080512
  19. VP-16 [Concomitant]
  20. ETOPOPHOS PRESERVATIVE FREE [Concomitant]
  21. METHOTREXATE [Suspect]
     Dosage: UNK
     Route: 042
     Dates: start: 20080326, end: 20080326
  22. VINCRISTINE [Suspect]
     Dosage: 2 MG/DAY
     Route: 042
     Dates: start: 20080514, end: 20080514
  23. MOPRAL [Concomitant]
     Dosage: UNK
     Dates: start: 20080515
  24. GLEEVEC [Suspect]
     Dosage: 600 MG/DAY
     Route: 048
     Dates: end: 20080518
  25. GLEEVEC [Suspect]
     Dosage: UNK
     Dates: start: 20080818
  26. IFOSFAMIDE [Concomitant]
     Dosage: UNK
     Route: 042
     Dates: start: 20080326, end: 20080326
  27. SOLU-MEDROL [Concomitant]
     Dosage: UNK
     Dates: start: 20080509, end: 20080509
  28. MORPHINE SULFATE [Concomitant]
     Dosage: UNK
     Dates: start: 20080516
  29. ZELITREX [Concomitant]
  30. CYTARABINE [Suspect]
     Dosage: UNK
     Route: 042
     Dates: start: 20080225, end: 20080225
  31. DEXAMETHASONE [Concomitant]
     Dosage: UNK
     Route: 042
     Dates: start: 20080509, end: 20080509
  32. VINDESINE [Concomitant]
     Dosage: UNK
     Route: 042
     Dates: start: 20080326, end: 20080326
  33. XYLOCAINE [Concomitant]
     Dosage: UNK
     Route: 050
     Dates: start: 20080515
  34. VINCRISTINE [Suspect]
     Dosage: 2 MG/DAY
     Route: 042
     Dates: start: 20080509, end: 20080509
  35. DEXAMETHASONE [Concomitant]
     Dosage: UNK
     Route: 042
     Dates: start: 20080418, end: 20080418
  36. ASPARAGINASE [Concomitant]
     Dosage: UNK
     Dates: start: 20080418, end: 20080418
  37. ASPARAGINASE [Concomitant]
     Dosage: 43000 IU/DAY
     Dates: start: 20080513, end: 20080514

REACTIONS (27)
  - PAIN OF SKIN [None]
  - RENAL FAILURE [None]
  - THROMBOCYTOPENIA [None]
  - MECHANICAL VENTILATION [None]
  - GASTROINTESTINAL DISORDER [None]
  - GASTRIC MUCOSAL LESION [None]
  - MUCOSAL INFLAMMATION [None]
  - CYTOLYTIC HEPATITIS [None]
  - ALANINE AMINOTRANSFERASE INCREASED [None]
  - HYPERTENSION [None]
  - OEDEMA [None]
  - BONE MARROW FAILURE [None]
  - RESPIRATORY DISORDER [None]
  - PARALYSIS [None]
  - DERMATITIS BULLOUS [None]
  - ENTERAL NUTRITION [None]
  - BLOOD ALKALINE PHOSPHATASE INCREASED [None]
  - BLOOD CREATININE INCREASED [None]
  - ASPARTATE AMINOTRANSFERASE INCREASED [None]
  - HYPERNATRAEMIA [None]
  - NIKOLSKY'S SIGN [None]
  - CHEILITIS [None]
  - BLOOD BILIRUBIN INCREASED [None]
  - STEVENS-JOHNSON SYNDROME [None]
  - TOXIC SKIN ERUPTION [None]
  - FEBRILE BONE MARROW APLASIA [None]
  - CHOLESTASIS [None]
